FAERS Safety Report 17218569 (Version 1)
Quarter: 2019Q4

REPORT INFORMATION
  Report Type: Spontaneous
  Country: FR (occurrence: FR)
  Receive Date: 20191231
  Receipt Date: 20191231
  Transmission Date: 20200122
  Serious: Yes (Hospitalization)
  Sender: FDA-Public Use
  Company Number: FR-ZYDUS-045047

PATIENT
  Age: 45 Year
  Sex: Female

DRUGS (3)
  1. ATROPA BELLADONNA EXTRACT/CAFFEINE/PAPAVER SOMNIFERUM TINCTURE/PARACETAMOL [Suspect]
     Active Substance: ACETAMINOPHEN\BELLADONNA LEAF\CAFFEINE\OPIUM
     Indication: DRUG USE DISORDER
     Route: 048
     Dates: start: 2017
  2. ZOLPIDEM [Suspect]
     Active Substance: ZOLPIDEM TARTRATE
     Indication: DRUG USE DISORDER
     Dates: start: 2005, end: 2019
  3. TRAMADOL. [Suspect]
     Active Substance: TRAMADOL
     Indication: DRUG USE DISORDER
     Dosage: AS NECESSARY
     Route: 048
     Dates: start: 2017, end: 201901

REACTIONS (1)
  - Drug use disorder [Not Recovered/Not Resolved]

NARRATIVE: CASE EVENT DATE: 2017
